FAERS Safety Report 11647694 (Version 1)
Quarter: 2015Q4

REPORT INFORMATION
  Report Type: Spontaneous
  Country: CA (occurrence: None)
  Receive Date: 20151020
  Receipt Date: 20151020
  Transmission Date: 20160304
  Serious: Yes (Disabling, Other)
  Sender: FDA-Public Use
  Company Number: None

PATIENT
  Age: 63 Year
  Sex: Female
  Weight: 70.31 kg

DRUGS (5)
  1. SULFASALAZINE 500MG PMS [Suspect]
     Active Substance: SULFASALAZINE
     Indication: PSORIATIC ARTHROPATHY
     Dosage: 1/DAY FOR 1 W?2/DAY FOR 2ND WK?TAKEN BY MOUTH
     Route: 048
     Dates: start: 20150715, end: 20150724
  2. CARLSON FISH OIL [Concomitant]
  3. CITICOLINE [Concomitant]
     Active Substance: CITICOLINE
  4. HELLABORUS [Concomitant]
  5. ENBREL [Concomitant]
     Active Substance: ETANERCEPT

REACTIONS (12)
  - Loss of consciousness [None]
  - Contusion [None]
  - Rash [None]
  - Brain injury [None]
  - Eye contusion [None]
  - Device breakage [None]
  - Blood pressure increased [None]
  - Malaise [None]
  - Cerebral haemorrhage [None]
  - Face injury [None]
  - Chest injury [None]
  - Eye swelling [None]

NARRATIVE: CASE EVENT DATE: 20150726
